FAERS Safety Report 5086060-6 (Version None)
Quarter: 2006Q3

REPORT INFORMATION
  Report Type: 
  Country: None (occurrence: None)
  Receive Date: 20060818
  Receipt Date: 20060810
  Transmission Date: 20061208
  Serious: Yes (Hospitalization)
  Sender: FDA-Public Use
  Company Number: 2005133542

PATIENT
  Age: 62 Year
  Sex: Male
  Weight: 55.2 kg

DRUGS (6)
  1. SOMAVERT [Suspect]
     Indication: ALBUMINURIA
     Dosage: 10 MG (DAILY), SUBCUTANEOUS
     Route: 058
     Dates: start: 20050708, end: 20060104
  2. METFORMIN (METFORMIN) [Concomitant]
  3. GLYBURIDE [Concomitant]
  4. LOSARTAN POTASSIUM [Concomitant]
  5. AMLODIPINE [Concomitant]
  6. ASPIRIN [Concomitant]

REACTIONS (6)
  - BENIGN PROSTATIC HYPERPLASIA [None]
  - CELLULITIS [None]
  - DIABETIC KETOACIDOSIS [None]
  - FURUNCLE [None]
  - HICCUPS [None]
  - VOMITING [None]
